FAERS Safety Report 8542885-3 (Version None)
Quarter: 2012Q3

REPORT INFORMATION
  Report Type: 
  Country: None (occurrence: None)
  Receive Date: 20120727
  Receipt Date: 20120723
  Transmission Date: 20120928
  Serious: Yes (Death, Hospitalization, Other)
  Sender: FDA-Public Use
  Company Number: US-009507513-1207USA010607

PATIENT

DRUGS (7)
  1. LASIX [Concomitant]
  2. SIMVASTATIN [Suspect]
     Route: 048
  3. CIPROFLOXACIN HCL [Concomitant]
  4. TRADJENTA [Interacting]
  5. ZOCOR [Concomitant]
     Route: 048
  6. TOPROL-XL [Concomitant]
  7. ARB IB [Concomitant]

REACTIONS (4)
  - RHABDOMYOLYSIS [None]
  - ACUTE RESPIRATORY DISTRESS SYNDROME [None]
  - RENAL FAILURE [None]
  - POTENTIATING DRUG INTERACTION [None]
